FAERS Safety Report 4488081-0 (Version None)
Quarter: 2004Q4

REPORT INFORMATION
  Report Type: 
  Country: None (occurrence: None)
  Receive Date: 20041028
  Receipt Date: 20041019
  Transmission Date: 20050328
  Serious: Yes (Other)
  Sender: FDA-Public Use
  Company Number: FR-GLAXOSMITHKLINE-B0348806A

PATIENT
  Age: 50 Year
  Sex: Male

DRUGS (3)
  1. VALACYCLOVIR HCL [Suspect]
     Dosage: 500MG PER DAY
     Route: 048
  2. ZOLOFT [Suspect]
  3. ZOVIRAX [Suspect]

REACTIONS (4)
  - DRUG INTERACTION [None]
  - SKIN DESQUAMATION [None]
  - SKIN DISCOLOURATION [None]
  - STEVENS-JOHNSON SYNDROME [None]
